FAERS Safety Report 10855066 (Version 1)
Quarter: 2015Q1

REPORT INFORMATION
  Report Type: Spontaneous
  Country: US (occurrence: None)
  Receive Date: 20150218
  Receipt Date: 20150218
  Transmission Date: 20150721
  Serious: Yes (Life-Threatening, Hospitalization, Disabling, Other)
  Sender: FDA-Public Use
  Company Number: None

PATIENT
  Age: 50 Year

DRUGS (1)
  1. OXYCONTIN [Suspect]
     Active Substance: OXYCODONE HYDROCHLORIDE
     Indication: INTERVERTEBRAL DISC PROTRUSION
     Route: 048

REACTIONS (16)
  - Haemorrhage [None]
  - Oesophageal infection [None]
  - Social problem [None]
  - Rash [None]
  - Quality of life decreased [None]
  - Partner stress [None]
  - Economic problem [None]
  - Skin lesion [None]
  - Infection [None]
  - Ingrown hair [None]
  - Pain [None]
  - Urticaria [None]
  - Pruritus [None]
  - Feeling abnormal [None]
  - Deformity [None]
  - Impaired work ability [None]

NARRATIVE: CASE EVENT DATE: 20150202
